FAERS Safety Report 4872788-7 (Version None)
Quarter: 2006Q1

REPORT INFORMATION
  Report Type: 
  Country: None (occurrence: None)
  Receive Date: 20060103
  Receipt Date: 20051219
  Transmission Date: 20060701
  Serious: Yes (Other)
  Sender: FDA-Public Use
  Company Number: US200512002830

PATIENT
  Sex: Male

DRUGS (2)
  1. HUMALOG [Suspect]
     Dosage: 50 U, EACH MORNING,
  2. LANTUS [Concomitant]

REACTIONS (5)
  - CEREBROVASCULAR ACCIDENT [None]
  - MOBILITY DECREASED [None]
  - PHARMACEUTICAL PRODUCT COMPLAINT [None]
  - VISUAL ACUITY REDUCED [None]
  - WRONG DRUG ADMINISTERED [None]
